FAERS Safety Report 10991719 (Version 2)
Quarter: 2016Q2

REPORT INFORMATION
  Report Type: Spontaneous
  Country: IT (occurrence: IT)
  Receive Date: 20150406
  Receipt Date: 20160512
  Transmission Date: 20160815
  Serious: No
  Sender: FDA-Public Use
  Company Number: PHHY2015IT039906

PATIENT
  Age: 63 Year
  Sex: Female

DRUGS (9)
  1. METFORMIN [Suspect]
     Active Substance: METFORMIN HYDROCHLORIDE
     Dosage: 850 MG, QD
     Route: 065
  2. BEVACIZUMAB [Concomitant]
     Active Substance: BEVACIZUMAB
     Indication: METASTASES TO CENTRAL NERVOUS SYSTEM
     Dosage: 7.5 MG/KG- 15 MG/KG, 3 CYCLES (SALVAGE THERAPY)UNK
     Route: 065
     Dates: start: 201303
  3. CARBOPLATIN. [Concomitant]
     Active Substance: CARBOPLATIN
     Indication: ENDOMETRIAL ADENOCARCINOMA
     Dosage: UNK UNK, QW
     Route: 065
     Dates: start: 201207, end: 201301
  4. GEMCITABINE [Concomitant]
     Active Substance: GEMCITABINE\GEMCITABINE HYDROCHLORIDE
     Indication: ENDOMETRIAL ADENOCARCINOMA
     Dosage: (CUMULATIVE DOSE: GEMCITABINE 5800 MG/M2 - JM8 100 MG/M2 OF 2 CYCLES
     Route: 065
     Dates: end: 201303
  5. METFORMIN [Suspect]
     Active Substance: METFORMIN HYDROCHLORIDE
     Indication: HYPERGLYCAEMIA
     Dosage: 850 MG, BID
     Route: 065
     Dates: start: 201303
  6. PACLITAXEL. [Concomitant]
     Active Substance: PACLITAXEL
     Indication: ENDOMETRIAL ADENOCARCINOMA
     Dosage: UNK UNK, QW
     Route: 065
     Dates: start: 201207, end: 201301
  7. CARBOPLATIN. [Concomitant]
     Active Substance: CARBOPLATIN
     Indication: ENDOMETRIAL ADENOCARCINOMA
     Dosage: (CUMULATIVE DOSE: GEMCITABINE 5800 MG/M2 - JM8 100 MG/M2 OF 2 CYCLES
     Route: 065
     Dates: end: 201303
  8. INSULIN [Concomitant]
     Active Substance: INSULIN NOS
     Indication: HYPERGLYCAEMIA
     Dosage: UNK
     Route: 065
     Dates: end: 201303
  9. BEVACIZUMAB [Concomitant]
     Active Substance: BEVACIZUMAB
     Indication: ENDOMETRIAL ADENOCARCINOMA

REACTIONS (3)
  - Eastern Cooperative Oncology Group performance status improved [Unknown]
  - Therapeutic response unexpected [Unknown]
  - Abdominal discomfort [Unknown]

NARRATIVE: CASE EVENT DATE: 201305
